FAERS Safety Report 24649559 (Version 1)
Quarter: 2024Q4

REPORT INFORMATION
  Report Type: Spontaneous
  Country: JP (occurrence: JP)
  Receive Date: 20241121
  Receipt Date: 20241121
  Transmission Date: 20250115
  Serious: Yes (Death)
  Sender: NOVARTIS
  Company Number: JP-002147023-NVSJ2024JP010646

PATIENT
  Age: 83 Year
  Sex: Female

DRUGS (15)
  1. TABRECTA [Suspect]
     Active Substance: CAPMATINIB
     Indication: Lung adenocarcinoma recurrent
     Dosage: 200 MG, BID
     Route: 048
     Dates: start: 20240227
  2. ACETAMINOPHEN\DEXTROMETHORPHAN\DOXYLAMINE\PSEUDOEPHEDRINE [Concomitant]
     Active Substance: ACETAMINOPHEN\DEXTROMETHORPHAN\DOXYLAMINE\PSEUDOEPHEDRINE
     Indication: Product used for unknown indication
     Dosage: UNK
     Route: 048
  3. ACOTIAMIDE [Concomitant]
     Active Substance: ACOTIAMIDE
     Indication: Product used for unknown indication
     Dosage: UNK
     Route: 048
  4. SITAGLIPTIN [Concomitant]
     Active Substance: SITAGLIPTIN
     Indication: Product used for unknown indication
     Dosage: UNK
     Route: 048
  5. VONOPRAZAN [Concomitant]
     Active Substance: VONOPRAZAN
     Indication: Product used for unknown indication
     Dosage: UNK
     Route: 048
  6. MAGNESIUM [Concomitant]
     Active Substance: MAGNESIUM
     Indication: Product used for unknown indication
     Dosage: UNK
     Route: 048
  7. SENNOSIDES [Concomitant]
     Active Substance: SENNOSIDES
     Indication: Product used for unknown indication
     Dosage: UNK
     Route: 048
  8. BIO-THREE [Concomitant]
     Active Substance: HERBALS
     Indication: Product used for unknown indication
     Dosage: UNK
     Route: 048
  9. VALPROATE SODIUM [Concomitant]
     Active Substance: VALPROATE SODIUM
     Indication: Product used for unknown indication
     Dosage: UNK
     Route: 048
  10. LAMOTRIGINE [Concomitant]
     Active Substance: LAMOTRIGINE
     Indication: Product used for unknown indication
     Dosage: UNK
     Route: 048
  11. TRAZODONE [Concomitant]
     Active Substance: TRAZODONE HYDROCHLORIDE
     Indication: Product used for unknown indication
     Dosage: UNK
     Route: 048
  12. ZOLPIDEM [Concomitant]
     Active Substance: ZOLPIDEM TARTRATE
     Indication: Product used for unknown indication
     Dosage: UNK
     Route: 048
  13. Ramelteon jg [Concomitant]
     Indication: Product used for unknown indication
     Dosage: UNK
     Route: 048
  14. MIANSERIN HYDROCHLORIDE [Concomitant]
     Active Substance: MIANSERIN HYDROCHLORIDE
     Indication: Product used for unknown indication
     Dosage: UNK
     Route: 048
  15. ARIPIPRAZOLE [Concomitant]
     Active Substance: ARIPIPRAZOLE
     Indication: Product used for unknown indication
     Dosage: UNK
     Route: 048

REACTIONS (3)
  - Death [Fatal]
  - Pleural effusion [Not Recovered/Not Resolved]
  - Concomitant disease aggravated [Not Recovered/Not Resolved]

NARRATIVE: CASE EVENT DATE: 20240318
